FAERS Safety Report 8315402 (Version 6)
Quarter: 2013Q4

REPORT INFORMATION
  Report Type: Spontaneous
  Country: ES (occurrence: ES)
  Receive Date: 20111229
  Receipt Date: 20131202
  Transmission Date: 20140711
  Serious: Yes (Other)
  Sender: FDA-Public Use
  Company Number: ES-AMGEN-ESPSP2011068373

PATIENT
  Age: 80 Year
  Sex: Female

DRUGS (12)
  1. PROLIA [Suspect]
     Indication: OSTEOPOROSIS
     Dosage: 60 MG, Q6MO
     Route: 058
     Dates: start: 20111205
  2. METFORMIN [Concomitant]
     Indication: DIABETES MELLITUS
     Dosage: 850 MG, QD
  3. ANTIDEPRESSANTS [Concomitant]
     Indication: DEPRESSION
     Dosage: UNK
  4. BENZODIAZEPINE DERIVATIVES [Concomitant]
     Indication: DEPRESSION
     Dosage: UNK
  5. CYMBALTA [Concomitant]
     Dosage: 60 MG, UNK
  6. IBUPROFEN [Concomitant]
     Dosage: 600 MG, Q8H
  7. DIAMICRON [Concomitant]
     Dosage: 30 MG, QD
  8. SIMVASTATIN [Concomitant]
     Dosage: 40 MG, QD
  9. LEXATIN                            /00424801/ [Concomitant]
     Dosage: 1.5 MG, QD
  10. HIDROFEROL [Concomitant]
     Dosage: 266 MG, QMO
  11. IDEOS UNIDIA [Concomitant]
     Dosage: UNK
  12. EXELON                             /01383201/ [Concomitant]
     Dosage: 9.5 MG, UNK

REACTIONS (3)
  - Confusional state [Recovered/Resolved]
  - Depression [Recovering/Resolving]
  - Urinary tract infection [Recovering/Resolving]
